FAERS Safety Report 9103584 (Version 1)
Quarter: 2013Q1

REPORT INFORMATION
  Report Type: Spontaneous
  Country: SE (occurrence: SE)
  Receive Date: 20130218
  Receipt Date: 20130218
  Transmission Date: 20140127
  Serious: Yes (Other)
  Sender: FDA-Public Use
  Company Number: SE-GLAXOSMITHKLINE-B0867870A

PATIENT
  Sex: Female

DRUGS (1)
  1. ZYBAN [Suspect]
     Indication: PRODUCT USED FOR UNKNOWN INDICATION
     Route: 065
     Dates: end: 20121221

REACTIONS (10)
  - Cerebrovascular accident [Unknown]
  - Muscular weakness [Unknown]
  - Fatigue [Unknown]
  - Neurological symptom [Unknown]
  - Ataxia [Unknown]
  - Dysarthria [Unknown]
  - Bradyphrenia [Unknown]
  - Dysgraphia [Unknown]
  - Gait disturbance [Unknown]
  - Malaise [Unknown]
